FAERS Safety Report 9287684 (Version 1)
Quarter: 2013Q2

REPORT INFORMATION
  Report Type: Spontaneous
  Country: ES (occurrence: ES)
  Receive Date: 20130514
  Receipt Date: 20130514
  Transmission Date: 20140414
  Serious: Yes (Other)
  Sender: FDA-Public Use
  Company Number: ES-JNJFOC-20130506999

PATIENT
  Age: 48 Year
  Sex: Male
  Weight: 126 kg

DRUGS (5)
  1. REMICADE [Suspect]
     Indication: CHOROIDITIS
     Dosage: GIVEN AT 0,2 AND 6 WEEKS
     Route: 042
     Dates: start: 20081205, end: 20090116
  2. SANDIMMUN [Suspect]
     Indication: CHOROIDITIS
     Route: 048
     Dates: start: 20050905, end: 20081205
  3. IMUREL [Suspect]
     Indication: CHOROIDITIS
     Route: 048
     Dates: start: 20050905, end: 20081205
  4. LYMETEL PROLIB [Concomitant]
     Route: 065
     Dates: start: 20071207
  5. PANTOPRAZOLE [Concomitant]
     Route: 065
     Dates: start: 20071207

REACTIONS (2)
  - Lymph node tuberculosis [Recovered/Resolved]
  - Off label use [Unknown]
